FAERS Safety Report 20079162 (Version 1)
Quarter: 2021Q4

REPORT INFORMATION
  Report Type: Spontaneous
  Country: FR (occurrence: FR)
  Receive Date: 20211117
  Receipt Date: 20211117
  Transmission Date: 20220303
  Serious: Yes (Hospitalization, Other)
  Sender: FDA-Public Use
  Company Number: FR-AUROBINDO-AUR-APL-2021-007236

PATIENT
  Age: 26 Year
  Sex: Female

DRUGS (6)
  1. ALMOTRIPTAN [Suspect]
     Active Substance: ALMOTRIPTAN
     Indication: Migraine with aura
     Dosage: 12.5 MILLIGRAM, PRESCRIBED DOSE WAS 12.5MG
     Route: 048
  2. ALMOTRIPTAN [Suspect]
     Active Substance: ALMOTRIPTAN
     Dosage: UNK, MORE THAN 2 PILLS PER WEEK, WITH SEVERAL DAYS OF DAILY ADMINISTRATIONS
     Route: 065
  3. ALMOTRIPTAN [Suspect]
     Active Substance: ALMOTRIPTAN
     Dosage: UNK, AT LEAST 2 PILLS OF ALMOTRIPTAN EVERY DAY DURING 3 OR 4 DAYS COUPLE TIMES A MONTH
     Route: 065
  4. ESOMEPRAZOLE [Suspect]
     Active Substance: ESOMEPRAZOLE
     Indication: Product used for unknown indication
     Dosage: UNK, AT THERAPEUTIC AND LIMITED DOSES
     Route: 065
  5. ACETAMINOPHEN [Suspect]
     Active Substance: ACETAMINOPHEN
     Indication: Product used for unknown indication
     Dosage: UNK, AT THERAPEUTIC AND LIMITED DOSES
     Route: 065
  6. VERAPAMIL [Concomitant]
     Active Substance: VERAPAMIL HYDROCHLORIDE
     Indication: Prophylaxis
     Dosage: 240 MILLIGRAM, DAILY
     Route: 048

REACTIONS (15)
  - Placental insufficiency [Unknown]
  - Exposure during pregnancy [Unknown]
  - Overdose [Unknown]
  - Placental disorder [Unknown]
  - Intentional product misuse [Unknown]
  - Hypoperfusion [Unknown]
  - Premature baby [Unknown]
  - Foetal growth restriction [Unknown]
  - Oligohydramnios [Unknown]
  - Premature delivery [Unknown]
  - Live birth [Unknown]
  - Placental calcification [Unknown]
  - Intentional overdose [Unknown]
  - Uterine ischaemia [Unknown]
  - Maternal exposure during pregnancy [Recovered/Resolved]
